FAERS Safety Report 11658947 (Version 1)
Quarter: 2015Q4

REPORT INFORMATION
  Report Type: Spontaneous
  Country: US (occurrence: US)
  Receive Date: 20151026
  Receipt Date: 20151026
  Transmission Date: 20160304
  Serious: No
  Sender: FDA-Public Use
  Company Number: US-009507513-1510USA002002

PATIENT
  Sex: Female

DRUGS (4)
  1. NASONEX [Suspect]
     Active Substance: MOMETASONE FUROATE
     Dosage: 50 MICROGRAM, FREQUENCY UNSPECIFIED
     Route: 045
  2. NASONEX [Suspect]
     Active Substance: MOMETASONE FUROATE
     Dosage: 50 MICROGRAM, FREQUENCY UNSPECIFIED
     Route: 045
  3. NASONEX [Suspect]
     Active Substance: MOMETASONE FUROATE
     Dosage: 50 MICROGRAM, FREQUENCY UNSPECIFIED
     Route: 045
  4. NASONEX [Suspect]
     Active Substance: MOMETASONE FUROATE
     Dosage: 50 MICROGRAM, FREQUENCY UNSPECIFIED
     Route: 045

REACTIONS (3)
  - Paranasal sinus discomfort [Unknown]
  - Drug dose omission [Unknown]
  - Product quality issue [Unknown]
